FAERS Safety Report 12591987 (Version 1)
Quarter: 2016Q3

REPORT INFORMATION
  Report Type: Spontaneous
  Country: IR (occurrence: IR)
  Receive Date: 20160726
  Receipt Date: 20160726
  Transmission Date: 20161109
  Serious: Yes (Death, Other)
  Sender: FDA-Public Use
  Company Number: IR-SCIEGEN PHARMACEUTICALS INC-2016SCILIT00341

PATIENT
  Age: 70 Year
  Sex: Female

DRUGS (2)
  1. CLOPIDOGREL [Suspect]
     Active Substance: CLOPIDOGREL BISULFATE
     Indication: MYOCARDIAL INFARCTION
     Dosage: 75 MG, DAILY
     Route: 065
  2. ASPIRIN. [Suspect]
     Active Substance: ASPIRIN
     Indication: MYOCARDIAL INFARCTION
     Dosage: 160 MG, DAILY
     Route: 065

REACTIONS (5)
  - Pulmonary arterial hypertension [Unknown]
  - Hemiplegia [Unknown]
  - Cardiogenic shock [Fatal]
  - Cerebrovascular accident [Unknown]
  - Thrombosis [Unknown]
